FAERS Safety Report 9356189 (Version 1)
Quarter: 2013Q2

REPORT INFORMATION
  Report Type: Spontaneous
  Country: US (occurrence: US)
  Receive Date: 20130619
  Receipt Date: 20130619
  Transmission Date: 20140414
  Serious: Yes (Other)
  Sender: FDA-Public Use
  Company Number: US-PFIZER INC-2013180838

PATIENT
  Age: 78 Year
  Sex: Female
  Weight: 65.31 kg

DRUGS (7)
  1. VANCOMYCIN HCL [Suspect]
     Indication: CYSTITIS
     Dosage: UNK
     Route: 042
     Dates: start: 2008, end: 2008
  2. HYZAAR [Concomitant]
     Indication: HYPERTENSION
     Dosage: 125 DAILY
     Route: 048
  3. POTASSIUM CHLORIDE [Concomitant]
     Indication: BLOOD POTASSIUM DECREASED
     Dosage: 20 MEQ, 2X/DAY
  4. SYNTHROID [Concomitant]
     Indication: HYPOTHYROIDISM
     Dosage: 50 UG, 1X/DAY
  5. COMBIVENT [Concomitant]
     Indication: COUGH
     Dosage: UNK
  6. ASTEPRO [Concomitant]
     Indication: NASAL CONGESTION
     Dosage: UNK
     Route: 045
  7. ACIPHEX [Concomitant]
     Indication: GASTROOESOPHAGEAL REFLUX DISEASE
     Dosage: 20 MG, 1X/DAY

REACTIONS (2)
  - Convulsion [Unknown]
  - Drug ineffective [Unknown]
